FAERS Safety Report 18977137 (Version 1)
Quarter: 2021Q1

REPORT INFORMATION
  Report Type: Spontaneous
  Country: AE (occurrence: AE)
  Receive Date: 20210306
  Receipt Date: 20210306
  Transmission Date: 20210420
  Serious: No
  Sender: FDA-Public Use
  Company Number: AE-LUPIN PHARMACEUTICALS INC.-2021-02725

PATIENT
  Age: 6 Year
  Sex: Male

DRUGS (7)
  1. RISPERIDONE. [Suspect]
     Active Substance: RISPERIDONE
     Indication: AUTISM SPECTRUM DISORDER
     Dosage: 0.5 MILLIGRAM, AT NIGHT
     Route: 048
     Dates: start: 201911
  2. RISPERIDONE. [Suspect]
     Active Substance: RISPERIDONE
     Dosage: 0.5 MILLIGRAM, THE DOSE OF RISPERIDONE REACHED 0.5MG TWO TIMES A DAY ONE MONTH AFTER ITS INITIATION.
     Route: 048
  3. RISPERIDONE. [Suspect]
     Active Substance: RISPERIDONE
     Dosage: 0.5 MILLIGRAM, 2MG IN THE MORNING AND 0.5MG AT NIGHT
     Route: 048
  4. ATOMOXETINE. [Suspect]
     Active Substance: ATOMOXETINE HYDROCHLORIDE
     Dosage: 18 MILLIGRAM, AT NIGHT
     Route: 048
  5. METHYLPHENIDATE. [Suspect]
     Active Substance: METHYLPHENIDATE
     Indication: AUTISM SPECTRUM DISORDER
     Dosage: UNK, 5MG IN THE MORNING AND 2.5MG AT 2PM
     Route: 048
  6. ATOMOXETINE. [Suspect]
     Active Substance: ATOMOXETINE HYDROCHLORIDE
     Indication: AUTISM SPECTRUM DISORDER
     Dosage: 10 MILLIGRAM, AT NIGHT
     Route: 048
  7. RISPERIDONE. [Suspect]
     Active Substance: RISPERIDONE
     Dosage: UNK, THE DOSE OF RISPERIDONE REACHED 2MG IN THE MORNING AND 0.5MG AT NIGHT IN ANOTHER 2 MONTHS
     Route: 048

REACTIONS (3)
  - Anger [Unknown]
  - Irritability [Unknown]
  - Off label use [Unknown]

NARRATIVE: CASE EVENT DATE: 201911
